FAERS Safety Report 9373082 (Version 1)
Quarter: 2013Q2

REPORT INFORMATION
  Report Type: Spontaneous
  Country: GB (occurrence: GB)
  Receive Date: 20130627
  Receipt Date: 20130627
  Transmission Date: 20140414
  Serious: Yes (Life-Threatening, Hospitalization)
  Sender: FDA-Public Use
  Company Number: GB-PFIZER INC-2013187264

PATIENT
  Age: 51 Year
  Sex: Female

DRUGS (7)
  1. QUETIAPINE FUMARATE [Suspect]
     Dosage: 300 MG, UNK
     Dates: start: 20130328, end: 20130328
  2. PARACETAMOL [Suspect]
     Dosage: 500 MG, UNK
     Dates: start: 20130328, end: 20130328
  3. DOXYCYCLINE MONOHYDRATE [Suspect]
     Dosage: 100 MG, EVERY 4 HRS
     Dates: start: 20130328, end: 20130328
  4. ZAPONEX [Suspect]
     Dosage: UNK
     Route: 048
     Dates: start: 20090803, end: 200908
  5. ZAPONEX [Suspect]
     Dosage: UNK
     Route: 048
     Dates: start: 20090903, end: 201304
  6. ZAPONEX [Suspect]
     Dosage: UNK
     Route: 048
     Dates: start: 20130408, end: 2013
  7. PROPANOL [Suspect]
     Dosage: 10 MG, UNK
     Dates: start: 20130328, end: 20130328

REACTIONS (7)
  - Overdose [Recovered/Resolved]
  - Hypotension [Unknown]
  - Gamma-glutamyltransferase increased [Not Recovered/Not Resolved]
  - Protein total decreased [Recovered/Resolved]
  - Blood albumin decreased [Recovered/Resolved]
  - Blood alkaline phosphatase increased [Not Recovered/Not Resolved]
  - Alanine aminotransferase increased [Unknown]
